FAERS Safety Report 11457919 (Version 1)
Quarter: 2015Q3

REPORT INFORMATION
  Report Type: Spontaneous
  Country: US (occurrence: None)
  Receive Date: 20150903
  Receipt Date: 20150903
  Transmission Date: 20151125
  Serious: Yes (Other)
  Sender: FDA-Public Use
  Company Number: None

PATIENT
  Age: 79 Year
  Sex: Female
  Weight: 63.5 kg

DRUGS (9)
  1. CALCIUM [Concomitant]
     Active Substance: CALCIUM
  2. ATORVASTATIN [Concomitant]
     Active Substance: ATORVASTATIN
  3. ESCITALOPRAM [Concomitant]
     Active Substance: ESCITALOPRAM OXALATE
  4. PROLIA [Concomitant]
     Active Substance: DENOSUMAB
  5. LUMIGAN DROPS [Concomitant]
  6. RIVASTIGMINE. [Concomitant]
     Active Substance: RIVASTIGMINE
  7. WELLBUTRIN [Suspect]
     Active Substance: BUPROPION HYDROCHLORIDE
     Indication: DEPRESSION
     Route: 048
     Dates: start: 20150723, end: 20150731
  8. D3 [Concomitant]
     Active Substance: 25-HYDROXYCHOLECALCIFEROL, 5-TRANS-
  9. MULTIVITAMIN [Concomitant]
     Active Substance: VITAMINS

REACTIONS (9)
  - Tremor [None]
  - Confusional state [None]
  - Rib fracture [None]
  - Disorientation [None]
  - Eye contusion [None]
  - Head injury [None]
  - Dizziness [None]
  - Fall [None]
  - Contusion [None]

NARRATIVE: CASE EVENT DATE: 20150730
